FAERS Safety Report 22671609 (Version 2)
Quarter: 2024Q1

REPORT INFORMATION
  Report Type: Other
  Country: US (occurrence: None)
  Receive Date: 20230705
  Receipt Date: 20240223
  Transmission Date: 20240410
  Serious: Yes (Other)
  Sender: FDA-Public Use
  Company Number: US-ROCHE-3379259

PATIENT

DRUGS (14)
  1. ATEZOLIZUMAB [Suspect]
     Active Substance: ATEZOLIZUMAB
     Indication: Neoplasm malignant
     Route: 065
  2. ATEZOLIZUMAB [Suspect]
     Active Substance: ATEZOLIZUMAB
     Indication: Malignant melanoma
  3. IPILIMUMAB [Suspect]
     Active Substance: IPILIMUMAB
     Indication: Neoplasm malignant
     Route: 065
  4. IPILIMUMAB [Suspect]
     Active Substance: IPILIMUMAB
     Indication: Malignant melanoma
  5. PEMBROLIZUMAB [Suspect]
     Active Substance: PEMBROLIZUMAB
     Indication: Neoplasm malignant
     Route: 065
  6. PEMBROLIZUMAB [Suspect]
     Active Substance: PEMBROLIZUMAB
     Indication: Malignant melanoma
  7. NIVOLUMAB [Suspect]
     Active Substance: NIVOLUMAB
     Indication: Neoplasm malignant
     Route: 065
  8. NIVOLUMAB [Suspect]
     Active Substance: NIVOLUMAB
     Indication: Malignant melanoma
  9. CEMIPLIMAB [Suspect]
     Active Substance: CEMIPLIMAB
     Indication: Neoplasm malignant
     Route: 065
  10. CEMIPLIMAB [Suspect]
     Active Substance: CEMIPLIMAB
     Indication: Malignant melanoma
  11. AVELUMAB [Suspect]
     Active Substance: AVELUMAB
     Indication: Neoplasm malignant
     Route: 065
  12. AVELUMAB [Suspect]
     Active Substance: AVELUMAB
     Indication: Malignant melanoma
  13. DURVALUMAB [Suspect]
     Active Substance: DURVALUMAB
     Indication: Neoplasm malignant
     Route: 065
  14. DURVALUMAB [Suspect]
     Active Substance: DURVALUMAB
     Indication: Malignant melanoma

REACTIONS (19)
  - Erythema multiforme [Unknown]
  - Drug reaction with eosinophilia and systemic symptoms [Unknown]
  - SJS-TEN overlap [Unknown]
  - Lichenoid keratosis [Unknown]
  - Dermatitis psoriasiform [Unknown]
  - Vitiligo [Unknown]
  - Pruritus [Unknown]
  - Dermatitis acneiform [Unknown]
  - Dermatitis bullous [Unknown]
  - Drug hypersensitivity [Unknown]
  - Eczema [Unknown]
  - Rash maculo-papular [Unknown]
  - Mucosal inflammation [Unknown]
  - Panniculitis [Unknown]
  - Rash [Unknown]
  - Alopecia [Unknown]
  - Rash follicular [Unknown]
  - Acute febrile neutrophilic dermatosis [Unknown]
  - Urticaria [Unknown]
